FAERS Safety Report 16851395 (Version 1)
Quarter: 2019Q3

REPORT INFORMATION
  Report Type: Spontaneous
  Country: US (occurrence: US)
  Receive Date: 20190925
  Receipt Date: 20190925
  Transmission Date: 20191005
  Serious: Yes (Other)
  Sender: FDA-Public Use
  Company Number: US-PFIZER INC-2019407910

PATIENT
  Age: 76 Year
  Sex: Male
  Weight: 68.4 kg

DRUGS (3)
  1. DILANTIN [Suspect]
     Active Substance: PHENYTOIN
     Indication: PETIT MAL EPILEPSY
     Dosage: 100 MG, 2X/DAY [ONE 100MG IN THE MORNING AND ONE IN THE EVENING]
  2. DILANTIN [Suspect]
     Active Substance: PHENYTOIN
     Dosage: 200 MG, 2X/DAY  [100MG, CAPSULE, BY MOUTH, TWO IN THE MORNING TWO IN THE EVENING]
     Route: 048
  3. DILANTIN [Suspect]
     Active Substance: PHENYTOIN
     Dosage: 300 MG, DAILY [ONE 100MG TABLET IN THE MORNING, TWO IN THE EVENING]

REACTIONS (4)
  - Disease recurrence [Unknown]
  - Petit mal epilepsy [Unknown]
  - Product use in unapproved indication [Unknown]
  - Off label use [Unknown]
